FAERS Safety Report 5120301-1 (Version None)
Quarter: 2006Q4

REPORT INFORMATION
  Report Type: 
  Country: None (occurrence: None)
  Receive Date: 20061004
  Receipt Date: 20060601
  Transmission Date: 20070319
  Serious: Yes (Hospitalization, Other)
  Sender: FDA-Public Use
  Company Number: BR-ABBOTT-06P-020-0335178-00

PATIENT
  Sex: Female

DRUGS (5)
  1. HUMIRA [Suspect]
     Indication: RHEUMATOID ARTHRITIS
     Route: 058
     Dates: start: 20060411
  2. HUMIRA [Suspect]
     Indication: FIBROMYALGIA
  3. PREDNISONE [Concomitant]
     Indication: PAIN
     Route: 048
  4. DICLOFENAC [Concomitant]
     Indication: PAIN
     Route: 048
  5. DIAZEPAM [Concomitant]
     Indication: ANXIETY
     Route: 048

REACTIONS (9)
  - APPLICATION SITE IRRITATION [None]
  - BREAST MASS [None]
  - DRUG INEFFECTIVE [None]
  - INFLUENZA [None]
  - INJECTION SITE HAEMATOMA [None]
  - OEDEMA PERIPHERAL [None]
  - PAIN [None]
  - PARAESTHESIA [None]
  - URINARY TRACT INFECTION [None]
